FAERS Safety Report 9918182 (Version 2)
Quarter: 2014Q1

REPORT INFORMATION
  Report Type: Spontaneous
  Country: IT (occurrence: IT)
  Receive Date: 20140223
  Receipt Date: 20140319
  Transmission Date: 20141002
  Serious: Yes (Hospitalization)
  Sender: FDA-Public Use
  Company Number: IT-MYLANLABS-2014S1003098

PATIENT
  Age: 72 Year
  Sex: Female

DRUGS (6)
  1. LEVOFLOXACIN [Suspect]
     Indication: PRODUCT USED FOR UNKNOWN INDICATION
     Dosage: 10 DF TOTAL
     Route: 048
     Dates: start: 20131230, end: 20140108
  2. COUMADIN [Suspect]
     Indication: CEREBRAL ISCHAEMIA
     Dosage: 1 DF AS NECESSARY
     Route: 048
     Dates: start: 20020101, end: 20140111
  3. MODURETIC [Concomitant]
     Indication: HYPERTENSION
     Dosage: 1 DF
     Route: 048
     Dates: start: 20050101, end: 20140109
  4. EUTIROX [Concomitant]
     Indication: HYPOTHYROIDISM
     Dosage: 1 DF
     Route: 048
  5. ENALAPRIL MALEATE [Concomitant]
     Indication: HYPERTENSION
     Dates: start: 20050101, end: 20140109
  6. ANTIINFLAMMATORY AGENTS, NON-STEROIDS [Concomitant]
     Indication: BACK PAIN

REACTIONS (3)
  - Hypocoagulable state [Recovered/Resolved]
  - International normalised ratio increased [Recovered/Resolved]
  - Drug interaction [Recovered/Resolved]
